FAERS Safety Report 20783951 (Version 1)
Quarter: 2022Q2

REPORT INFORMATION
  Report Type: Spontaneous
  Country: US (occurrence: US)
  Receive Date: 20220504
  Receipt Date: 20220504
  Transmission Date: 20220721
  Serious: No
  Sender: FDA-Public Use
  Company Number: US-TEVA-2022-US-2025374

PATIENT

DRUGS (2)
  1. OLOPATADINE [Suspect]
     Active Substance: OLOPATADINE
     Indication: Eye allergy
     Route: 047
  2. OLOPATADINE [Suspect]
     Active Substance: OLOPATADINE
     Indication: Eye pruritus

REACTIONS (2)
  - Dry eye [Unknown]
  - Eye irritation [Unknown]
